FAERS Safety Report 9541724 (Version 3)
Quarter: 2013Q4

REPORT INFORMATION
  Report Type: Report from Study
  Country: DE (occurrence: DE)
  Receive Date: 20130923
  Receipt Date: 20131101
  Transmission Date: 20140711
  Serious: Yes (Other)
  Sender: FDA-Public Use
  Company Number: DE-ELI_LILLY_AND_COMPANY-DE201306005223

PATIENT
  Sex: Male

DRUGS (2)
  1. TERIPARATIDE [Suspect]
     Indication: OSTEOPOROSIS
     Dosage: UNK UNK, QD
     Route: 058
     Dates: start: 20120905
  2. CALCIUM ^SANDOZ^ [Concomitant]
     Dosage: 500 MG, BID
     Route: 065

REACTIONS (10)
  - Glaucoma [Not Recovered/Not Resolved]
  - Dyspnoea [Recovered/Resolved]
  - Back pain [Recovered/Resolved]
  - Back pain [Not Recovered/Not Resolved]
  - Palpitations [Recovered/Resolved]
  - Hypoaesthesia [Recovered/Resolved]
  - Peripheral coldness [Recovered/Resolved]
  - Bronchial disorder [Recovered/Resolved]
  - Gastric disorder [Recovered/Resolved]
  - Chest pain [Not Recovered/Not Resolved]
